FAERS Safety Report 11095874 (Version 1)
Quarter: 2015Q2

REPORT INFORMATION
  Report Type: Spontaneous
  Country: SA (occurrence: SA)
  Receive Date: 20150507
  Receipt Date: 20150507
  Transmission Date: 20150821
  Serious: Yes (Death, Hospitalization)
  Sender: FDA-Public Use
  Company Number: SA-ROCHE-1572526

PATIENT

DRUGS (3)
  1. ACTILYSE [Suspect]
     Active Substance: ALTEPLASE
     Indication: ACUTE MYOCARDIAL INFARCTION
     Route: 065
  2. ASPIRIN. [Concomitant]
     Active Substance: ASPIRIN
  3. ENOXAPARIN [Concomitant]
     Active Substance: ENOXAPARIN

REACTIONS (3)
  - Myocardial reperfusion injury [Fatal]
  - Drug ineffective [Unknown]
  - Hypotension [Unknown]
